FAERS Safety Report 7549612-7 (Version None)
Quarter: 2011Q2

REPORT INFORMATION
  Report Type: 
  Country: None (occurrence: None)
  Receive Date: 20110615
  Receipt Date: 20110610
  Transmission Date: 20111010
  Serious: Yes (Hospitalization)
  Sender: FDA-Public Use
  Company Number: B0726093A

PATIENT
  Age: 63 Year
  Sex: Male

DRUGS (1)
  1. AVANDIA [Suspect]
     Indication: DIABETES MELLITUS
     Route: 048
     Dates: start: 20010921, end: 20080117

REACTIONS (4)
  - DYSPNOEA [None]
  - FATIGUE [None]
  - AMNESIA [None]
  - CEREBROVASCULAR ACCIDENT [None]
